FAERS Safety Report 7450544-3 (Version None)
Quarter: 2011Q2

REPORT INFORMATION
  Report Type: 
  Country: None (occurrence: None)
  Receive Date: 20110502
  Receipt Date: 20110429
  Transmission Date: 20111010
  Serious: Yes (Death)
  Sender: FDA-Public Use
  Company Number: US-ROXANE LABORATORIES, INC.-2011-RO-00595RO

PATIENT
  Sex: Female

DRUGS (3)
  1. REBIF [Suspect]
     Indication: MULTIPLE SCLEROSIS
     Route: 058
     Dates: start: 20090423, end: 20100101
  2. CYCLOBENZAPRINE [Suspect]
     Dates: end: 20100101
  3. METHADONE [Suspect]
     Indication: PAIN
     Dates: end: 20100101

REACTIONS (2)
  - TOXICITY TO VARIOUS AGENTS [None]
  - CHRONIC OBSTRUCTIVE PULMONARY DISEASE [None]
